FAERS Safety Report 20257335 (Version 1)
Quarter: 2021Q4

REPORT INFORMATION
  Report Type: Report from Study
  Country: CA (occurrence: CA)
  Receive Date: 20211230
  Receipt Date: 20211230
  Transmission Date: 20220303
  Serious: Yes (Other)
  Sender: FDA-Public Use
  Company Number: CA-HLS-202003469

PATIENT
  Age: 41 Year
  Sex: Male

DRUGS (18)
  1. CLOZARIL [Suspect]
     Active Substance: CLOZAPINE
     Indication: Bipolar I disorder
     Dosage: 100 MG IN THE MORNING , 175 MG AT DINNER, 375 MG  AT BEDTIME
     Route: 048
     Dates: start: 20010124
  2. CLOZARIL [Suspect]
     Active Substance: CLOZAPINE
     Indication: Schizoaffective disorder bipolar type
     Dosage: 100 MG IN THE MORNING , 175 MG AT DINNER, 375 MG  AT BEDTIME
     Route: 048
     Dates: start: 20010124
  3. CLOZARIL [Suspect]
     Active Substance: CLOZAPINE
     Indication: Bipolar I disorder
     Dosage: 200 MG AT BED TIME
     Route: 048
     Dates: start: 2005
  4. CLOZARIL [Suspect]
     Active Substance: CLOZAPINE
     Indication: Schizoaffective disorder bipolar type
     Dosage: 200 MG AT BED TIME
     Route: 048
     Dates: start: 2005
  5. LAMOTRIGINE [Concomitant]
     Active Substance: LAMOTRIGINE
     Indication: Bipolar I disorder
     Dosage: 100 MG AT BED TIME
     Route: 048
     Dates: start: 2005
  6. LAMOTRIGINE [Concomitant]
     Active Substance: LAMOTRIGINE
     Indication: Bipolar I disorder
     Route: 065
     Dates: start: 201809
  7. LORAZEPAM [Concomitant]
     Active Substance: LORAZEPAM
     Indication: Bipolar I disorder
     Dosage: 0.5 MG AT BED TIME
     Route: 048
     Dates: start: 2005
  8. BENZTROPINE [Concomitant]
     Active Substance: BENZTROPINE
     Indication: Anxiety
     Dosage: AS NEEDED
     Route: 065
  9. BENZTROPINE [Concomitant]
     Active Substance: BENZTROPINE
     Indication: Bipolar I disorder
     Dosage: AS NEEDED
     Route: 065
  10. BENZTROPINE [Concomitant]
     Active Substance: BENZTROPINE
     Indication: Anxiety
     Dosage: 1 TABLET  AS NEEDED EVERY 2 MONTHS
     Route: 048
     Dates: end: 20210323
  11. BENZTROPINE [Concomitant]
     Active Substance: BENZTROPINE
     Indication: Bipolar I disorder
     Dosage: 1 TABLET  AS NEEDED EVERY 2 MONTHS
     Route: 048
     Dates: end: 20210323
  12. BENZTROPINE [Concomitant]
     Active Substance: BENZTROPINE
     Indication: Anxiety
     Dosage: 1/2 TO 1 AT BED TIME
     Route: 048
     Dates: start: 2005
  13. BENZTROPINE [Concomitant]
     Active Substance: BENZTROPINE
     Indication: Bipolar I disorder
     Dosage: 1/2 TO 1 AT BED TIME
     Route: 048
     Dates: start: 2005
  14. QUETIAPINE [Concomitant]
     Active Substance: QUETIAPINE
     Indication: Product used for unknown indication
     Dosage: 1 TABLET AT BED TIME
     Route: 065
  15. QUETIAPINE [Concomitant]
     Active Substance: QUETIAPINE
     Indication: Product used for unknown indication
     Route: 065
  16. ROSUVASTATIN [Concomitant]
     Active Substance: ROSUVASTATIN
     Indication: Product used for unknown indication
     Dosage: AT BEDTIME
     Route: 065
  17. PANTOPRAZOLE [Concomitant]
     Active Substance: PANTOPRAZOLE
     Indication: Product used for unknown indication
     Dosage: 2 TABLET AT BEDTIME
     Route: 065
     Dates: start: 20201117
  18. PANTOPRAZOLE [Concomitant]
     Active Substance: PANTOPRAZOLE
     Indication: Product used for unknown indication
     Dosage: IN THE MORNING
     Route: 065

REACTIONS (3)
  - Ejaculation delayed [Unknown]
  - White blood cell count decreased [Recovered/Resolved]
  - Retrograde ejaculation [Unknown]

NARRATIVE: CASE EVENT DATE: 20130101
